FAERS Safety Report 6687898-1 (Version None)
Quarter: 2010Q2

REPORT INFORMATION
  Report Type: 
  Country: None (occurrence: None)
  Receive Date: 20100420
  Receipt Date: 20100415
  Transmission Date: 20101027
  Serious: Yes (Hospitalization)
  Sender: FDA-Public Use
  Company Number: DK-ASTRAZENECA-2008SE05588

PATIENT
  Age: 30 Year
  Sex: Female

DRUGS (2)
  1. SEROQUEL [Suspect]
     Route: 048
     Dates: start: 20070101
  2. SEROQUEL [Suspect]
     Route: 048
     Dates: start: 20070101

REACTIONS (16)
  - AGGRESSION [None]
  - ALOPECIA [None]
  - ANXIETY [None]
  - APATHY [None]
  - DELUSION [None]
  - DIZZINESS [None]
  - EAR DISORDER [None]
  - FOOD CRAVING [None]
  - HYPERSOMNIA [None]
  - INCREASED APPETITE [None]
  - MENTAL IMPAIRMENT [None]
  - MOOD SWINGS [None]
  - NAUSEA [None]
  - OEDEMA PERIPHERAL [None]
  - PSYCHOTIC DISORDER [None]
  - VOMITING [None]
